FAERS Safety Report 17521851 (Version 1)
Quarter: 2020Q1

REPORT INFORMATION
  Report Type: Spontaneous
  Country: DE (occurrence: DE)
  Receive Date: 20200310
  Receipt Date: 20200310
  Transmission Date: 20200409
  Serious: Yes (Other)
  Sender: FDA-Public Use
  Company Number: DE-ASTRAZENECA-2020SE35009

PATIENT

DRUGS (8)
  1. PREDNISOLON [Concomitant]
     Active Substance: PREDNISOLONE
     Dosage: 40MG PERORAL FOR 5 DAYS WITH FOLLOWING DOSE REDUCTION (EVERY 3 DAYS REDUCTION BY 10MG)
     Route: 065
  2. SALBUTAMOL [Concomitant]
     Active Substance: ALBUTEROL
     Dosage: 3 TIMES DAILY AS WELL AS SALINE SOLUTION
     Route: 055
  3. BERODUAL [Concomitant]
     Active Substance: FENOTEROL HYDROBROMIDE\IPRATROPIUM BROMIDE
     Dosage: IF NEEDED, ACTUAL DAILY 4-6 TIMES
     Route: 065
  4. IPRATROPIUM BROMID [Concomitant]
     Active Substance: IPRATROPIUM BROMIDE
     Dosage: 3 TIMES DAILY AS WELL AS SALINE SOLUTION
     Route: 055
  5. SPIRIVA [Concomitant]
     Active Substance: TIOTROPIUM BROMIDE MONOHYDRATE
     Dosage: RESP, 2.5, TWO TIMES A DAY
     Route: 065
  6. AMOXICILLIN. [Concomitant]
     Active Substance: AMOXICILLIN
     Dosage: UNKNOWN
     Route: 065
  7. SYMBICORT [Suspect]
     Active Substance: BUDESONIDE\FORMOTEROL FUMARATE DIHYDRATE
     Dosage: 160.0 / 4.5 UG, TWO TIMES A DAY
     Route: 055
  8. CLAVULANIC ACID [Concomitant]
     Active Substance: CLAVULANIC ACID
     Dosage: UNKNOWN
     Route: 065

REACTIONS (15)
  - Wheezing [Unknown]
  - Bronchiectasis [Unknown]
  - Respiratory acidosis [Unknown]
  - Emphysema [Unknown]
  - Sputum increased [Unknown]
  - Obstructive airways disorder [Unknown]
  - Dyspnoea exertional [Unknown]
  - Hypoxia [Unknown]
  - Respiratory tract infection [Unknown]
  - Vital capacity decreased [Unknown]
  - Fatigue [Unknown]
  - Productive cough [Unknown]
  - Asthma-chronic obstructive pulmonary disease overlap syndrome [Unknown]
  - Asthma [Unknown]
  - Dyspnoea paroxysmal nocturnal [Unknown]
